FAERS Safety Report 5058302-4 (Version None)
Quarter: 2006Q2

REPORT INFORMATION
  Report Type: 
  Country: None (occurrence: None)
  Receive Date: 20060627
  Receipt Date: 20060404
  Transmission Date: 20061013
  Serious: Yes (Other)
  Sender: FDA-Public Use
  Company Number: 443410

PATIENT
  Sex: Male

DRUGS (1)
  1. ROFERON-A [Suspect]
     Indication: HEPATITIS C
     Dosage: 3 MILLIONIU

REACTIONS (1)
  - SUICIDAL IDEATION [None]
